FAERS Safety Report 23952065 (Version 1)
Quarter: 2024Q2

REPORT INFORMATION
  Report Type: Report from Study
  Country: CN (occurrence: CN)
  Receive Date: 20240607
  Receipt Date: 20240607
  Transmission Date: 20240716
  Serious: Yes (Other)
  Sender: FDA-Public Use
  Company Number: CN-TAKEDA-2023TUS074024

PATIENT
  Age: 54 Year
  Sex: Male
  Weight: 72.5 kg

DRUGS (27)
  1. BRENTUXIMAB VEDOTIN [Suspect]
     Active Substance: BRENTUXIMAB VEDOTIN
     Indication: Angioimmunoblastic T-cell lymphoma
     Dosage: 100 MG, EVERY 3 WEEKS
     Route: 042
     Dates: start: 20230719
  2. EPIRUBICIN HYDROCHLORIDE [Suspect]
     Active Substance: EPIRUBICIN HYDROCHLORIDE
     Indication: Angioimmunoblastic T-cell lymphoma
     Dosage: 120 MG
     Route: 042
     Dates: start: 20230719, end: 20230719
  3. PREDNISOLONE [Suspect]
     Active Substance: PREDNISOLONE
     Indication: Angioimmunoblastic T-cell lymphoma
     Dosage: 100 MG, 1X/DAY
     Route: 042
     Dates: start: 20230719, end: 20230723
  4. CYCLOPHOSPHAMIDE [Suspect]
     Active Substance: CYCLOPHOSPHAMIDE
     Indication: Angioimmunoblastic T-cell lymphoma
     Dosage: 1.4 G
     Route: 042
     Dates: start: 20230719, end: 20230719
  5. POTASSIUM CHLORIDE [Concomitant]
     Active Substance: POTASSIUM CHLORIDE
     Indication: Mineral supplementation
     Dosage: 1 G, 3X/DAY
     Route: 048
     Dates: start: 20230715, end: 20230812
  6. ACETAMINOPHEN\TRAMADOL HYDROCHLORIDE [Concomitant]
     Active Substance: ACETAMINOPHEN\TRAMADOL HYDROCHLORIDE
     Indication: Analgesic therapy
     Dosage: 37.5 MG, 2X/DAY
     Route: 048
     Dates: start: 20230717, end: 20230723
  7. MAGNESIUM ISOGLYCYRRHIZINATE [Concomitant]
     Active Substance: MAGNESIUM ISOGLYCYRRHIZINATE
     Indication: Prophylaxis
     Dosage: 40 ML, 1X/DAY
     Route: 042
     Dates: start: 20230717, end: 20230805
  8. SODIUM BICARBONATE [Concomitant]
     Active Substance: SODIUM BICARBONATE
     Indication: Blood alkalinisation therapy
     Dosage: 1 G, 3X/DAY
     Route: 048
     Dates: start: 20230717, end: 20230723
  9. FAMOTIDINE [Concomitant]
     Active Substance: FAMOTIDINE
     Indication: Prophylaxis
     Dosage: 20 MG, 2X/DAY
     Route: 042
     Dates: start: 20230717, end: 20230801
  10. ENOXAPARIN SODIUM [Concomitant]
     Active Substance: ENOXAPARIN SODIUM
     Indication: Anticoagulant therapy
     Dosage: 4000 IU, 2X/DAY
     Route: 058
     Dates: start: 20230717, end: 20230813
  11. CALCIUM GLUCONATE [Concomitant]
     Active Substance: CALCIUM GLUCONATE
     Indication: Mineral supplementation
     Dosage: 1 G, 1X/DAY
     Route: 042
     Dates: start: 20230717, end: 20230814
  12. OMADACYCLINE TOSYLATE [Concomitant]
     Active Substance: OMADACYCLINE TOSYLATE
     Indication: Pneumonia
     Dosage: 0.1 G, 1X/DAY
     Route: 042
     Dates: start: 20230717, end: 20230726
  13. ALBUMIN HUMAN [Concomitant]
     Active Substance: ALBUMIN HUMAN
     Indication: Supplementation therapy
     Dosage: 12.5 G, 1X/DAY
     Route: 042
     Dates: start: 20230718, end: 20230721
  14. ALBUMIN HUMAN [Concomitant]
     Active Substance: ALBUMIN HUMAN
     Dosage: 5 G, 1X/DAY
     Route: 042
     Dates: start: 20230721, end: 20230723
  15. TROPISETRON HYDROCHLORIDE [Concomitant]
     Active Substance: TROPISETRON HYDROCHLORIDE
     Indication: Antiemetic supportive care
     Dosage: 5 ML, 1X/DAY
     Route: 042
     Dates: start: 20230719, end: 20230720
  16. IPRATROPIUM BROMIDE [Concomitant]
     Active Substance: IPRATROPIUM BROMIDE\IPRATROPIUM BROMIDE ANHYDROUS
     Indication: Pneumonia
     Dosage: 2.5 ML, 3X/DAY
     Route: 050
     Dates: start: 20230720, end: 20230725
  17. BECLOMETHASONE DIPROPIONATE [Concomitant]
     Active Substance: BECLOMETHASONE DIPROPIONATE
     Indication: Pneumonia
     Dosage: 0.8 ML, 3X/DAY
     Route: 050
     Dates: start: 20230720, end: 20230725
  18. ACETAMINOPHEN [Concomitant]
     Active Substance: ACETAMINOPHEN
     Indication: Allergy prophylaxis
     Dosage: UNK
     Route: 048
     Dates: start: 20230719, end: 20230719
  19. TORSEMIDE [Concomitant]
     Active Substance: TORSEMIDE
     Indication: Polyuria
     Dosage: 20 MG
     Route: 042
     Dates: start: 20230719, end: 20230719
  20. TORSEMIDE [Concomitant]
     Active Substance: TORSEMIDE
     Dosage: 10 MG
     Route: 042
     Dates: start: 20230720, end: 20230720
  21. GLYCERIN [Concomitant]
     Active Substance: GLYCERIN
     Indication: Bowel movement irregularity
     Dosage: 20 ML
     Route: 054
     Dates: start: 20230720, end: 20230720
  22. DEXAMETHASONE SODIUM PHOSPHATE [Concomitant]
     Active Substance: DEXAMETHASONE PHOSPHATE\DEXAMETHASONE SODIUM PHOSPHATE
     Indication: Allergy prophylaxis
     Dosage: 2.5 MG
     Route: 042
     Dates: start: 20230721, end: 20230721
  23. METHYLPREDNISOLONE SODIUM SUCCINATE [Concomitant]
     Active Substance: METHYLPREDNISOLONE SODIUM SUCCINATE
     Indication: Allergy prophylaxis
     Dosage: 40 MG
     Route: 042
     Dates: start: 20230719, end: 20230719
  24. DESLORATADINE [Concomitant]
     Active Substance: DESLORATADINE
     Indication: Allergy prophylaxis
     Dosage: 5 MG
     Route: 048
     Dates: start: 20230719, end: 20230719
  25. ACETAMINOPHEN\ASPIRIN\CAFFEINE [Concomitant]
     Active Substance: ACETAMINOPHEN\ASPIRIN\CAFFEINE
     Indication: Allergy prophylaxis
     Dosage: UNK
     Route: 048
     Dates: start: 20230719, end: 20230719
  26. ADEMETIONINE BUTANEDISULFONATE [Concomitant]
     Active Substance: ADEMETIONINE BUTANEDISULFONATE
     Indication: Hepatobiliary disorder prophylaxis
     Dosage: UNK
     Dates: start: 20230717, end: 20230821
  27. COMPOUND ALPHA KETOACID [Concomitant]
     Indication: Renal disorder prophylaxis
     Dosage: UNK
     Dates: start: 20230719, end: 20230724

REACTIONS (9)
  - Hypokalaemia [Not Recovered/Not Resolved]
  - Cholecystitis [Not Recovered/Not Resolved]
  - Platelet count decreased [Not Recovered/Not Resolved]
  - Nausea [Recovered/Resolved]
  - Anaemia [Not Recovered/Not Resolved]
  - White blood cell count decreased [Not Recovered/Not Resolved]
  - Hepatic function abnormal [Recovered/Resolved]
  - Bronchitis [Not Recovered/Not Resolved]
  - Off label use [Unknown]

NARRATIVE: CASE EVENT DATE: 20230719
